FAERS Safety Report 7902858-8 (Version None)
Quarter: 2011Q4

REPORT INFORMATION
  Report Type: 
  Country: None (occurrence: None)
  Receive Date: 20111107
  Receipt Date: 20111031
  Transmission Date: 20120403
  Serious: Yes (Life-Threatening, Hospitalization)
  Sender: FDA-Public Use
  Company Number: 1098224

PATIENT
  Age: 65 Year
  Sex: Female

DRUGS (3)
  1. FLUOROURACIL [Concomitant]
  2. LEUCOVORIN CALCIUM [Concomitant]
  3. OXALIPLATIN [Suspect]
     Indication: COLON CANCER STAGE III
     Dosage: 170MG-160M
     Dates: start: 20110113, end: 20110622

REACTIONS (5)
  - ACUTE RESPIRATORY FAILURE [None]
  - COGNITIVE DISORDER [None]
  - PULMONARY FIBROSIS [None]
  - KLEBSIELLA TEST POSITIVE [None]
  - BLOOD CULTURE POSITIVE [None]
